FAERS Safety Report 24349884 (Version 1)
Quarter: 2024Q3

REPORT INFORMATION
  Report Type: Report from Study
  Country: US (occurrence: US)
  Receive Date: 20240923
  Receipt Date: 20240923
  Transmission Date: 20241016
  Serious: No
  Sender: ROCHE
  Company Number: US-ROCHE-3493586

PATIENT
  Age: 50 Year
  Sex: Female

DRUGS (4)
  1. HERCEPTIN [Suspect]
     Active Substance: TRASTUZUMAB
     Indication: Meningeal disorder
     Route: 041
  2. HERCEPTIN [Suspect]
     Active Substance: TRASTUZUMAB
     Indication: Metastasis
  3. HERCEPTIN [Suspect]
     Active Substance: TRASTUZUMAB
     Indication: Meningeal disorder
     Route: 037
  4. HERCEPTIN [Suspect]
     Active Substance: TRASTUZUMAB
     Indication: Metastasis

REACTIONS (2)
  - Off label use [Unknown]
  - No adverse event [Unknown]
